FAERS Safety Report 7530811-5 (Version None)
Quarter: 2011Q2

REPORT INFORMATION
  Report Type: 
  Country: None (occurrence: None)
  Receive Date: 20110607
  Receipt Date: 20110526
  Transmission Date: 20111010
  Serious: Yes (Hospitalization, Other)
  Sender: FDA-Public Use
  Company Number: US-RB-016803-10

PATIENT
  Age: 72 Year
  Sex: Female

DRUGS (3)
  1. SUBOXONE [Suspect]
     Indication: PAIN MANAGEMENT
     Dosage: TAPERING DOSES.
     Route: 060
     Dates: start: 20100601, end: 20110513
  2. BUPRENORPHINE [Suspect]
     Indication: DRUG DEPENDENCE
     Dosage: ^2-4 MG DAILY^
     Route: 060
     Dates: start: 20110101, end: 20110101
  3. SUBOXONE [Suspect]
     Indication: DRUG DEPENDENCE
     Dosage: TAPERING DOSES.
     Route: 060
     Dates: start: 20070101, end: 20100501

REACTIONS (4)
  - LOSS OF CONSCIOUSNESS [None]
  - DRUG WITHDRAWAL SYNDROME [None]
  - THERAPEUTIC RESPONSE DECREASED [None]
  - COGNITIVE DISORDER [None]
